FAERS Safety Report 19727677 (Version 1)
Quarter: 2021Q3

REPORT INFORMATION
  Report Type: Report from Study
  Country: None (occurrence: US)
  Receive Date: 20210819
  Receipt Date: 20210819
  Transmission Date: 20211014
  Serious: Yes (Other)
  Sender: FDA-Public Use
  Company Number: US-ABBVIE-21K-163-3956917-00

PATIENT
  Age: 79 Year
  Sex: Female

DRUGS (2)
  1. HUMIRA [Suspect]
     Active Substance: ADALIMUMAB
     Indication: RHEUMATOID ARTHRITIS
     Route: 058
  2. HUMIRA [Suspect]
     Active Substance: ADALIMUMAB
     Route: 058

REACTIONS (11)
  - Weight decreased [Unknown]
  - Cerebral haemorrhage [Unknown]
  - Haematoma [Unknown]
  - Brain injury [Unknown]
  - Fall [Unknown]
  - Subdural haematoma [Unknown]
  - Macular degeneration [Not Recovered/Not Resolved]
  - Pain [Unknown]
  - Alopecia [Unknown]
  - Therapeutic response shortened [Unknown]
  - Intracardiac thrombus [Unknown]

NARRATIVE: CASE EVENT DATE: 2005
